FAERS Safety Report 14829866 (Version 1)
Quarter: 2018Q2

REPORT INFORMATION
  Report Type: Spontaneous
  Country: US (occurrence: US)
  Receive Date: 20180430
  Receipt Date: 20180430
  Transmission Date: 20180711
  Serious: Yes (Hospitalization, Other)
  Sender: FDA-Public Use
  Company Number: US-PFIZER INC-2018172002

PATIENT
  Age: 73 Year
  Sex: Female
  Weight: 87 kg

DRUGS (2)
  1. CELEBREX [Suspect]
     Active Substance: CELECOXIB
     Dosage: 100 MG, 1X/DAY
     Dates: start: 2016
  2. CELEBREX [Suspect]
     Active Substance: CELECOXIB
     Indication: ARTHRITIS
     Dosage: 200 MG, UNK
     Dates: start: 2016

REACTIONS (5)
  - Abdominal pain upper [Recovered/Resolved]
  - Dyspnoea [Unknown]
  - Thrombosis [Unknown]
  - Heart valve incompetence [Not Recovered/Not Resolved]
  - Regurgitation [Recovered/Resolved]

NARRATIVE: CASE EVENT DATE: 2016
